FAERS Safety Report 7516778-4 (Version None)
Quarter: 2011Q2

REPORT INFORMATION
  Report Type: 
  Country: None (occurrence: None)
  Receive Date: 20110601
  Receipt Date: 20110526
  Transmission Date: 20111010
  Serious: Yes (Death)
  Sender: FDA-Public Use
  Company Number: PHHY2011GB46376

PATIENT
  Age: 60 Year
  Sex: Male

DRUGS (4)
  1. MORPHINE [Suspect]
  2. TRAMADOL HCL [Suspect]
  3. ACETAMINOPHEN [Concomitant]
  4. DIHYDROCODEINE BITARTRATE INJ [Suspect]

REACTIONS (4)
  - ABDOMINAL DISCOMFORT [None]
  - RESPIRATORY RATE DECREASED [None]
  - BRONCHOPNEUMONIA [None]
  - HEPATIC CIRRHOSIS [None]
